FAERS Safety Report 7109220-9 (Version None)
Quarter: 2010Q4

REPORT INFORMATION
  Report Type: 
  Country: None (occurrence: None)
  Receive Date: 20101117
  Receipt Date: 20101105
  Transmission Date: 20110411
  Serious: Yes (Hospitalization)
  Sender: FDA-Public Use
  Company Number: ES-ELI_LILLY_AND_COMPANY-ES201011001746

PATIENT
  Sex: Female
  Weight: 40 kg

DRUGS (7)
  1. FORTEO [Suspect]
     Indication: OSTEOPOROSIS
     Dosage: 20 UG, DAILY (1/D)
     Route: 058
     Dates: start: 20070620
  2. CYMBALTA [Concomitant]
     Dosage: 30 MG, DAILY (1/D)
  3. POTASION [Concomitant]
     Dosage: 600 MG, EVERY 8 HRS
  4. DURAGESIC-100 [Concomitant]
     Dosage: 1 D/F, OTHER (EVERY 72 HS)
  5. OPIREN [Concomitant]
     Dosage: 1 D/F, DAILY (1/D)
  6. CARDYL [Concomitant]
     Dosage: 40 MG, DAILY (1/D)
  7. LORAZEPAM [Concomitant]
     Dosage: 1 MG, DAILY (1/D)

REACTIONS (4)
  - FALL [None]
  - LEUKOCYTOSIS [None]
  - PNEUMOTHORAX [None]
  - RIB FRACTURE [None]
